FAERS Safety Report 7764018-3 (Version None)
Quarter: 2011Q3

REPORT INFORMATION
  Report Type: 
  Country: None (occurrence: None)
  Receive Date: 20110921
  Receipt Date: 20110916
  Transmission Date: 20111222
  Serious: No
  Sender: FDA-Public Use
  Company Number: US-PFIZER INC-2011175980

PATIENT
  Sex: Male

DRUGS (2)
  1. SUTENT [Suspect]
     Indication: RENAL CELL CARCINOMA
     Dosage: 50 MG, 1 CAPSULE 1X/DAY FOR 28 DAYS 14 DAYS OFF THEN REPEAT
     Route: 048
  2. SUTENT [Suspect]
     Dosage: 50 MG, 1X/DAY FOR 28 DAYS, THEN STOP FOR 14 DAYS REPEAT THIS CYCLE
     Route: 048
     Dates: start: 20110628

REACTIONS (4)
  - RASH [None]
  - YELLOW SKIN [None]
  - FLATULENCE [None]
  - FATIGUE [None]
